FAERS Safety Report 8585726 (Version 8)
Quarter: 2013Q3

REPORT INFORMATION
  Report Type: Report from Study
  Country: JP (occurrence: JP)
  Receive Date: 20120530
  Receipt Date: 20130920
  Transmission Date: 20140515
  Serious: Yes (Hospitalization, Other)
  Sender: FDA-Public Use
  Company Number: JP-VERTEX PHARMACEUTICAL INC.-AE-2012-007725

PATIENT
  Age: 66 Year
  Sex: Male

DRUGS (18)
  1. VX-950 (TELAPREVIR) [Suspect]
     Indication: CHRONIC HEPATITIS C
     Dosage: 2250 MG, QD
     Route: 048
     Dates: start: 20120319, end: 20120514
  2. PEGINTRON [Suspect]
     Indication: CHRONIC HEPATITIS C
     Dosage: 1.5 ?G/KG, QW
     Route: 058
     Dates: start: 20120319, end: 20120514
  3. PEGINTRON [Suspect]
     Dosage: 1.5 ?G/KG, QW
     Route: 058
     Dates: start: 20120524
  4. REBETOL [Suspect]
     Indication: CHRONIC HEPATITIS C
     Dosage: 600 MG, QD
     Route: 048
     Dates: start: 20120319, end: 20120429
  5. REBETOL [Suspect]
     Dosage: 400 MG, QD
     Route: 048
     Dates: start: 20120430, end: 20120506
  6. REBETOL [Suspect]
     Dosage: 200 MG, QD
     Route: 048
     Dates: start: 20120507, end: 20120529
  7. REBETOL [Suspect]
     Dosage: 600 MG, QD
     Route: 048
     Dates: start: 20120530, end: 20120612
  8. REBETOL [Suspect]
     Dosage: 400 MG, QD
     Route: 048
     Dates: start: 20120613, end: 20120724
  9. REBETOL [Suspect]
     Dosage: 600 MG, QD
     Route: 048
     Dates: start: 20120725
  10. URSO [Concomitant]
     Dosage: 900 MG, QD
     Route: 048
  11. DIOVAN [Concomitant]
     Dosage: 40 MG, QD
     Route: 048
  12. ACINON [Concomitant]
     Dosage: 150 MG, QD
     Route: 048
  13. PRIMPERAN [Concomitant]
     Dosage: 5 MG, PRN
     Route: 048
     Dates: start: 20120416, end: 20120423
  14. OLMETEC [Concomitant]
     Dosage: 10 MG, QD
     Route: 048
     Dates: start: 20120531
  15. NORVASC [Concomitant]
     Dosage: 2.5 MG, QD
     Route: 048
  16. NORVASC [Concomitant]
     Dosage: 2.5 MG, QD
     Route: 048
     Dates: start: 20120530
  17. TAKEPRON [Concomitant]
     Dosage: 15 MG, QD
     Route: 048
     Dates: start: 20120627
  18. NORVASC OD [Concomitant]
     Dosage: 2.5 MG, QD
     Route: 048
     Dates: start: 20120530

REACTIONS (2)
  - Erythema multiforme [Recovered/Resolved]
  - Haemoglobin decreased [Recovered/Resolved]
